FAERS Safety Report 6979620-6 (Version None)
Quarter: 2010Q3

REPORT INFORMATION
  Report Type: 
  Country: None (occurrence: None)
  Receive Date: 20100910
  Receipt Date: 20100910
  Transmission Date: 20110219
  Serious: Yes (Death)
  Sender: FDA-Public Use
  Company Number: None

PATIENT
  Age: 62 Year
  Sex: Female
  Weight: 77 kg

DRUGS (14)
  1. LOVENOX [Suspect]
     Indication: MYOCARDIAL INFARCTION
     Dosage: 80MG BID SQ
     Route: 058
     Dates: start: 20090810, end: 20090819
  2. FLAGYL [Concomitant]
  3. FLOVENT [Concomitant]
  4. CARDARONE [Concomitant]
  5. PLAVIX [Concomitant]
  6. ASPIRIN [Concomitant]
  7. CYMBALTA [Concomitant]
  8. POTASSIUM CHLORIDE [Concomitant]
  9. GABAPENTIN [Concomitant]
  10. NITROGLYCERIN [Concomitant]
  11. TOPROL-XL [Concomitant]
  12. PROTONIX [Concomitant]
  13. ZOCOR [Concomitant]
  14. HUMULIN R [Concomitant]

REACTIONS (2)
  - BACTEROIDES BACTERAEMIA [None]
  - COLONIC HAEMATOMA [None]
